FAERS Safety Report 20323439 (Version 1)
Quarter: 2022Q1

REPORT INFORMATION
  Report Type: Spontaneous
  Country: US (occurrence: None)
  Receive Date: 20220111
  Receipt Date: 20220111
  Transmission Date: 20220423
  Serious: Yes (Death)
  Sender: FDA-Public Use
  Company Number: None

PATIENT
  Sex: Female

DRUGS (1)
  1. HUMIRA [Suspect]
     Active Substance: ADALIMUMAB
     Indication: Psoriasis
     Dosage: DOSE OR AMOUNT: 40MG/0.4ML?FREQUENCY: INJECT 1 PEN SC EVERY OTHER WEEK
     Route: 058
     Dates: start: 20200822

REACTIONS (1)
  - Death [None]
